FAERS Safety Report 4274726-7 (Version None)
Quarter: 2004Q1

REPORT INFORMATION
  Report Type: 
  Country: None (occurrence: None)
  Receive Date: 20040120
  Receipt Date: 20040110
  Transmission Date: 20041129
  Serious: Yes (Hospitalization)
  Sender: FDA-Public Use
  Company Number: FR-BRISTOL-MYERS SQUIBB COMPANY-12475133

PATIENT
  Sex: Female

DRUGS (2)
  1. VIDEX [Suspect]
     Indication: HIV INFECTION
     Route: 048
  2. ZERIT [Suspect]
     Indication: HIV INFECTION
     Route: 048

REACTIONS (2)
  - FAECES DISCOLOURED [None]
  - PANCREATITIS ACUTE [None]
